FAERS Safety Report 4746523-7 (Version None)
Quarter: 2005Q3

REPORT INFORMATION
  Report Type: 
  Country: None (occurrence: None)
  Receive Date: 20050815
  Receipt Date: 20050804
  Transmission Date: 20060218
  Serious: Yes (Hospitalization)
  Sender: FDA-Public Use
  Company Number: 430013M05FRA

PATIENT
  Age: 58 Year
  Sex: Male

DRUGS (3)
  1. NOVANTRONE [Suspect]
     Indication: MULTIPLE SCLEROSIS
     Dosage: 20 MG, 1 IN 1 CYCLE, INTRAVENOUS (NOT OTHERWISE SPECIFIED)
     Route: 042
     Dates: start: 20010101, end: 20010801
  2. AMANTADINE HCL [Concomitant]
  3. PRAVASTATIN SODIUM [Concomitant]

REACTIONS (4)
  - ACUTE PULMONARY OEDEMA [None]
  - CARDIAC FAILURE [None]
  - CARDIOMEGALY [None]
  - EJECTION FRACTION DECREASED [None]
